FAERS Safety Report 11536917 (Version 1)
Quarter: 2015Q3

REPORT INFORMATION
  Report Type: Spontaneous
  Country: US (occurrence: None)
  Receive Date: 20150921
  Receipt Date: 20150921
  Transmission Date: 20151125
  Serious: Yes (Other)
  Sender: FDA-Public Use
  Company Number: None

PATIENT
  Age: 62 Year
  Sex: Female
  Weight: 90.72 kg

DRUGS (12)
  1. KLONOPIN [Concomitant]
     Active Substance: CLONAZEPAM
  2. VITAMIN D [Concomitant]
     Active Substance: CHOLECALCIFEROL
  3. B VITAMINS [Concomitant]
     Active Substance: CYANOCOBALAMIN\DEXPANTHENOL\NIACINAMIDE\PYRIDOXINE HYDROCHLORIDE\RIBOFLAVIN 5^-PHOSPHATE SODIUM\THIAMINE HYDROCHLORIDE\VITAMIN B COMPLEX
  4. METROPROLOL [Concomitant]
     Active Substance: METOPROLOL
  5. CYMBALTA [Concomitant]
     Active Substance: DULOXETINE HYDROCHLORIDE
  6. REMERON [Concomitant]
     Active Substance: MIRTAZAPINE
  7. XANAX [Concomitant]
     Active Substance: ALPRAZOLAM
  8. ABILIFY [Suspect]
     Active Substance: ARIPIPRAZOLE
  9. VITAMIN A [Concomitant]
     Active Substance: VITAMIN A
  10. MOBIC [Concomitant]
     Active Substance: MELOXICAM
  11. MAGNESIUM [Concomitant]
     Active Substance: MAGNESIUM
  12. LYRICA [Concomitant]
     Active Substance: PREGABALIN

REACTIONS (2)
  - Oral mucosal exfoliation [None]
  - Tardive dyskinesia [None]

NARRATIVE: CASE EVENT DATE: 20150326
